FAERS Safety Report 4616482-6 (Version None)
Quarter: 2005Q1

REPORT INFORMATION
  Report Type: 
  Country: None (occurrence: None)
  Receive Date: 20050318
  Receipt Date: 20050308
  Transmission Date: 20050727
  Serious: Yes (Other)
  Sender: FDA-Public Use
  Company Number: 2005042307

PATIENT
  Age: 64 Year
  Sex: Male
  Weight: 117.5 kg

DRUGS (1)
  1. GENOTROPIN [Suspect]
     Indication: HYPOPITUITARISM
     Dates: start: 20030723, end: 20050211

REACTIONS (2)
  - HODGKIN'S DISEASE [None]
  - MASS [None]
